FAERS Safety Report 8902116 (Version 1)
Quarter: 2012Q4

REPORT INFORMATION
  Report Type: 
  Country: DE (occurrence: DE)
  Receive Date: 20121112
  Receipt Date: 20121112
  Transmission Date: 20130627
  Serious: Yes (Life-Threatening, Hospitalization)
  Sender: FDA-Public Use
  Company Number: DE-PFIZER INC-2012278427

PATIENT
  Age: 41 Year
  Sex: Female
  Weight: 80 kg

DRUGS (5)
  1. VENLAFAXINE HYDROCHLORIDE [Suspect]
     Indication: DEPRESSION
     Dosage: 225 mg, 1-2 weeks
     Route: 048
  2. LITHIUM [Concomitant]
     Indication: DEPRESSION
     Dosage: 1125 mg (structure of separate dosages)
     Route: 048
  3. RISPERDAL [Concomitant]
     Dosage: 1.5 DF of 1 mg tablets (structure of separate dosages)
     Route: 048
  4. DONEURIN [Concomitant]
     Indication: DEPRESSION
     Dosage: 1.5 DF (100 tablets, structure of separate dosages)
     Route: 048
  5. TAVOR [Concomitant]
     Dosage: 2.5 DF, as needed
     Route: 048

REACTIONS (5)
  - Depression [Unknown]
  - Depression suicidal [Unknown]
  - Depression [Unknown]
  - Social avoidant behaviour [Unknown]
  - Drug ineffective [Unknown]
